FAERS Safety Report 15329198 (Version 4)
Quarter: 2021Q1

REPORT INFORMATION
  Report Type: Spontaneous
  Country: US (occurrence: US)
  Receive Date: 20180829
  Receipt Date: 20210226
  Transmission Date: 20210419
  Serious: Yes (Hospitalization, Other)
  Sender: FDA-Public Use
  Company Number: US-TEVA-2018-US-894912

PATIENT
  Age: 65 Year
  Sex: Female

DRUGS (23)
  1. IRON [Concomitant]
     Active Substance: IRON
  2. LISINOPRIL. [Concomitant]
     Active Substance: LISINOPRIL
     Route: 065
  3. METHENAM [Concomitant]
  4. SOLIFENACIN [Concomitant]
     Active Substance: SOLIFENACIN
  5. FLUOXETINE [Concomitant]
     Active Substance: FLUOXETINE HYDROCHLORIDE
  6. VITAMIN C [Concomitant]
     Active Substance: ASCORBIC ACID
  7. MODAFINIL. [Concomitant]
     Active Substance: MODAFINIL
  8. SEROQUEL [Concomitant]
     Active Substance: QUETIAPINE FUMARATE
  9. CALCIUM CITRATE [Concomitant]
     Active Substance: CALCIUM CITRATE
  10. MELOXICAM. [Concomitant]
     Active Substance: MELOXICAM
  11. SENNA [Concomitant]
     Active Substance: SENNA LEAF\SENNOSIDES\SENNOSIDES A AND B
  12. MAGNESIUM [Concomitant]
     Active Substance: MAGNESIUM
  13. BUPROPN HCL [Concomitant]
     Active Substance: BUPROPION HYDROCHLORIDE
  14. FOSAMAX [Concomitant]
     Active Substance: ALENDRONATE SODIUM
  15. VITAMIN D [Concomitant]
     Active Substance: VITAMIN D NOS
  16. BRICAIACT [Concomitant]
  17. AMBIEN [Concomitant]
     Active Substance: ZOLPIDEM TARTRATE
  18. CYMBALTA [Concomitant]
     Active Substance: DULOXETINE HYDROCHLORIDE
  19. FISH OIL [Concomitant]
     Active Substance: FISH OIL
  20. PROPRANOLOL [Concomitant]
     Active Substance: PROPRANOLOL HYDROCHLORIDE
  21. ROPINIROLE. [Concomitant]
     Active Substance: ROPINIROLE
  22. COPAXONE [Suspect]
     Active Substance: GLATIRAMER ACETATE
     Indication: MULTIPLE SCLEROSIS
     Route: 058
     Dates: start: 20180124
  23. ATORVASTATIN [Concomitant]
     Active Substance: ATORVASTATIN

REACTIONS (8)
  - Back pain [Not Recovered/Not Resolved]
  - Asthenia [Not Recovered/Not Resolved]
  - Depression [Recovering/Resolving]
  - Intracranial aneurysm [Not Recovered/Not Resolved]
  - Pain [Not Recovered/Not Resolved]
  - Fatigue [Not Recovered/Not Resolved]
  - Loss of personal independence in daily activities [Unknown]
  - Optic neuritis [Not Recovered/Not Resolved]

NARRATIVE: CASE EVENT DATE: 20180918
